FAERS Safety Report 12696363 (Version 1)
Quarter: 2016Q3

REPORT INFORMATION
  Report Type: Spontaneous
  Country: GB (occurrence: GB)
  Receive Date: 20160830
  Receipt Date: 20160830
  Transmission Date: 20161109
  Serious: Yes (Death, Hospitalization)
  Sender: FDA-Public Use
  Company Number: GB-ASTRAZENECA-2016SE90305

PATIENT
  Age: 90 Year
  Sex: Female
  Weight: 53.3 kg

DRUGS (1)
  1. GEFITINIB [Suspect]
     Active Substance: GEFITINIB
     Indication: LUNG ADENOCARCINOMA STAGE IV
     Route: 048
     Dates: start: 20151116, end: 20160717

REACTIONS (5)
  - Haemoglobin decreased [Unknown]
  - Malaise [Unknown]
  - Gastrointestinal haemorrhage [Fatal]
  - Constipation [Unknown]
  - Melaena [Unknown]

NARRATIVE: CASE EVENT DATE: 20160717
